FAERS Safety Report 25256979 (Version 1)
Quarter: 2025Q2

REPORT INFORMATION
  Report Type: Spontaneous
  Country: TR (occurrence: TR)
  Receive Date: 20250430
  Receipt Date: 20250430
  Transmission Date: 20250717
  Serious: Yes (Hospitalization)
  Sender: UCB
  Company Number: TR-UCBSA-2025024907

PATIENT

DRUGS (2)
  1. BIMZELX [Suspect]
     Active Substance: BIMEKIZUMAB-BKZX
     Indication: Psoriasis
     Dates: start: 2025, end: 2025
  2. INH [Suspect]
     Active Substance: ISONIAZID
     Indication: Product used for unknown indication

REACTIONS (3)
  - Hepatic enzyme increased [Unknown]
  - Chromaturia [Unknown]
  - Pruritus [Unknown]

NARRATIVE: CASE EVENT DATE: 20250101
